FAERS Safety Report 20848353 (Version 1)
Quarter: 2022Q2

REPORT INFORMATION
  Report Type: Spontaneous
  Country: US (occurrence: None)
  Receive Date: 20220519
  Receipt Date: 20220519
  Transmission Date: 20220720
  Serious: Yes (Hospitalization, Other)
  Sender: FDA-Public Use
  Company Number: US-Hikma Pharmaceuticals USA Inc.-US-H14001-22-01162

PATIENT
  Sex: Female
  Weight: 77.1 kg

DRUGS (4)
  1. CAFFEINE [Suspect]
     Active Substance: CAFFEINE
     Indication: Product used for unknown indication
     Dosage: UNKNOWN
     Route: 065
  2. REMODULIN [Suspect]
     Active Substance: TREPROSTINIL
     Indication: Pulmonary arterial hypertension
     Dosage: UNKNOWN
     Route: 041
     Dates: start: 20160628
  3. REMODULIN [Suspect]
     Active Substance: TREPROSTINIL
     Route: 042
  4. OPSUMIT [Concomitant]
     Active Substance: MACITENTAN
     Indication: Product used for unknown indication
     Dosage: UNKNOWN
     Route: 065

REACTIONS (4)
  - Gastrooesophageal reflux disease [Unknown]
  - Nervousness [Unknown]
  - Dyspnoea [Unknown]
  - Diarrhoea [Unknown]
